FAERS Safety Report 15885001 (Version 1)
Quarter: 2019Q1

REPORT INFORMATION
  Report Type: Spontaneous
  Country: US (occurrence: US)
  Receive Date: 20190129
  Receipt Date: 20190129
  Transmission Date: 20190417
  Serious: No
  Sender: FDA-Public Use
  Company Number: US-MORTON GROVE PHARMACEUTICALS, INC.-2061873

PATIENT
  Age: 63 Year
  Sex: Female
  Weight: 59.09 kg

DRUGS (5)
  1. MAGNESIUM [Concomitant]
     Active Substance: MAGNESIUM
  2. LACTULOSE SOLUTION 10 G/15 ML [Suspect]
     Active Substance: LACTULOSE
     Indication: CONSTIPATION
     Route: 048
     Dates: start: 20181216
  3. VIATMIN D [Concomitant]
  4. ATORVASTATIN 20 MG [Concomitant]
     Active Substance: ATORVASTATIN
  5. NON-PRESCRIPTION CALCIUM [Concomitant]

REACTIONS (1)
  - Hypercholesterolaemia [Not Recovered/Not Resolved]

NARRATIVE: CASE EVENT DATE: 20181216
